FAERS Safety Report 6670688-3 (Version None)
Quarter: 2010Q2

REPORT INFORMATION
  Report Type: 
  Country: None (occurrence: None)
  Receive Date: 20100405
  Receipt Date: 20100301
  Transmission Date: 20101027
  Serious: Yes (Hospitalization)
  Sender: FDA-Public Use
  Company Number: US-LHC-2010006

PATIENT
  Age: 5 Month
  Sex: Male
  Weight: 7 kg

DRUGS (1)
  1. OXYGEN USP (OXYGEN) (GAS FOR INHALATION) [Suspect]
     Indication: CARDIAC DISORDER
     Dosage: INHALATION
     Route: 055
     Dates: end: 20100228

REACTIONS (2)
  - DEVICE FAILURE [None]
  - MALAISE [None]
